FAERS Safety Report 20917724 (Version 1)
Quarter: 2022Q2

REPORT INFORMATION
  Report Type: Other
  Country: US (occurrence: None)
  Receive Date: 20220606
  Receipt Date: 20220606
  Transmission Date: 20220721
  Serious: Yes (Other)
  Sender: FDA-Public Use
  Company Number: US-ROCHE-3111124

PATIENT

DRUGS (4)
  1. BEVACIZUMAB [Suspect]
     Active Substance: BEVACIZUMAB
     Indication: Retinopathy of prematurity
     Route: 050
  2. BOSENTAN [Concomitant]
     Active Substance: BOSENTAN
  3. NITRIC OXIDE [Concomitant]
     Active Substance: NITRIC OXIDE
  4. SILDENAFIL [Concomitant]
     Active Substance: SILDENAFIL

REACTIONS (3)
  - Pulmonary hypertension [Unknown]
  - Off label use [Unknown]
  - Off label use [Unknown]
